FAERS Safety Report 4453860-2 (Version None)
Quarter: 2004Q3

REPORT INFORMATION
  Report Type: 
  Country: None (occurrence: None)
  Receive Date: 20040920
  Receipt Date: 20040910
  Transmission Date: 20050211
  Serious: Yes (Death)
  Sender: FDA-Public Use
  Company Number: US-JNJFOC-20040504969

PATIENT
  Sex: Male

DRUGS (6)
  1. DURAGESIC [Suspect]
     Indication: DRUG USE FOR UNKNOWN INDICATION
     Route: 062
  2. NEXIUM [Concomitant]
  3. LEXAPRO [Concomitant]
  4. XANAX [Concomitant]
     Dosage: AS NEEDED
  5. PERCOCET [Concomitant]
  6. PERCOCET [Concomitant]
     Dosage: 5/325 MG EVERY 4-6 HOURS AS NEEDED.

REACTIONS (1)
  - INTENTIONAL MISUSE [None]
